FAERS Safety Report 22637561 (Version 1)
Quarter: 2023Q2

REPORT INFORMATION
  Report Type: Other
  Country: CN (occurrence: CN)
  Receive Date: 20230626
  Receipt Date: 20230626
  Transmission Date: 20230722
  Serious: Yes (Hospitalization, Other)
  Sender: FDA-Public Use
  Company Number: CN-DENTSPLY-2023SCDP000199

PATIENT
  Age: 45 Year
  Sex: Female

DRUGS (1)
  1. LIDOCAINE HYDROCHLORIDE AND EPINEPHRINE BITARTRATE [Suspect]
     Active Substance: EPINEPHRINE BITARTRATE\LIDOCAINE HYDROCHLORIDE
     Indication: Local anaesthesia
     Dosage: 2.5 MILLILITER TOTAL (CUMULATIVE DOSE) 1% LIDOCAINE HYDROCHLORIDE, 0.01 MG/ML EPINEPHRINE
     Dates: start: 202101, end: 202101

REACTIONS (2)
  - Ophthalmoplegia [Recovered/Resolved]
  - Administration site extravasation [Recovered/Resolved]

NARRATIVE: CASE EVENT DATE: 20210101
